FAERS Safety Report 15206740 (Version 1)
Quarter: 2018Q3

REPORT INFORMATION
  Report Type: Spontaneous
  Country: US (occurrence: US)
  Receive Date: 20180628
  Receipt Date: 20180628
  Transmission Date: 20181010
  Serious: No
  Sender: FDA-Public Use
  Company Number: None

PATIENT
  Age: 69 Year
  Sex: Female

DRUGS (1)
  1. ENBREL [Suspect]
     Active Substance: ETANERCEPT

REACTIONS (8)
  - Injection site irritation [None]
  - Needle issue [None]
  - Injection site erythema [None]
  - Injection site pain [None]
  - Therapy non-responder [None]
  - Device malfunction [None]
  - Injection site pruritus [None]
  - Injection site reaction [None]

NARRATIVE: CASE EVENT DATE: 20180628
